FAERS Safety Report 8765287 (Version 1)
Quarter: 2012Q4

REPORT INFORMATION
  Report Type: 
  Country: US (occurrence: US)
  Receive Date: 20120831
  Receipt Date: 20120831
  Transmission Date: 20130627
  Serious: No
  Sender: FDA-Public Use
  Company Number: US-BAYER-2012-085939

PATIENT
  Sex: Female

DRUGS (1)
  1. BEYAZ [Suspect]
     Indication: SKIN DISORDER
     Dosage: UNK
     Dates: start: 201203

REACTIONS (2)
  - Skin mass [None]
  - Erythema nodosum [None]
